FAERS Safety Report 9702099 (Version 1)
Quarter: 2013Q4

REPORT INFORMATION
  Report Type: Report from Study
  Country: US (occurrence: US)
  Receive Date: 20131121
  Receipt Date: 20131121
  Transmission Date: 20140711
  Serious: Yes (Hospitalization, Other)
  Sender: FDA-Public Use
  Company Number: US-DRAFT-US-2013-12176

PATIENT
  Age: 35 Year
  Sex: Female
  Weight: 54.6 kg

DRUGS (5)
  1. BUSULFEX [Suspect]
     Indication: LYMPHOMA
     Dosage: 180 MG MILLIGRAM(S), DAILY DOSE
     Route: 042
     Dates: start: 20050316, end: 20050319
  2. BUSULFEX [Suspect]
     Indication: HAEMATOLOGICAL MALIGNANCY
  3. FLUDARABINE [Suspect]
     Indication: LYMPHOMA
     Dosage: 40 MG MILLIGRAM(S), DAILY DOSE
     Route: 042
     Dates: start: 20050315, end: 20050319
  4. ALEMTUZUMAB [Suspect]
     Dosage: 20 MG MILLIGRAM(S), DAILY DOSE
     Route: 042
     Dates: start: 20050315, end: 20050319
  5. CLONAZEPAM [Suspect]
     Dosage: UNK
     Route: 048

REACTIONS (5)
  - Genital herpes simplex [Recovered/Resolved]
  - Pneumonia pneumococcal [Recovered/Resolved]
  - Deep vein thrombosis [Unknown]
  - Nausea [Unknown]
  - Vomiting [Unknown]
